FAERS Safety Report 9415593 (Version 1)
Quarter: 2013Q3

REPORT INFORMATION
  Report Type: Report from Study
  Country: BR (occurrence: BR)
  Receive Date: 20130723
  Receipt Date: 20130723
  Transmission Date: 20140515
  Serious: Yes (Other)
  Sender: FDA-Public Use
  Company Number: PHHY2013BR078254

PATIENT
  Sex: Male
  Weight: 76 kg

DRUGS (7)
  1. EXELON PATCH [Suspect]
     Dosage: UNK UKN, UNK
     Dates: start: 2010, end: 2010
  2. EXELON PATCH [Suspect]
     Dosage: 4.6 MG, ONCE A DAY
     Route: 062
     Dates: start: 201302
  3. PROLOPA [Concomitant]
     Indication: MUSCLE RIGIDITY
     Dosage: UNK UKN, UNK
     Dates: start: 2008
  4. NIAR [Concomitant]
     Indication: PARKINSON^S DISEASE
     Dosage: UNK UKN, UNK
     Dates: start: 2011
  5. ALOIS [Concomitant]
     Indication: DEMENTIA ALZHEIMER^S TYPE
     Dosage: UNK UKN, UNK
     Dates: start: 2011
  6. LOSARTAN [Concomitant]
     Indication: HYPERTENSION
     Dosage: UNK UKN, UNK
     Dates: start: 2011
  7. SEROQUEL [Concomitant]
     Dosage: UNK UKN, UNK
     Dates: start: 2011

REACTIONS (2)
  - General physical health deterioration [Not Recovered/Not Resolved]
  - Amnesia [Not Recovered/Not Resolved]
